FAERS Safety Report 4387042-X (Version None)
Quarter: 2004Q2

REPORT INFORMATION
  Report Type: 
  Country: None (occurrence: None)
  Receive Date: 20040630
  Receipt Date: 20040301
  Transmission Date: 20050107
  Serious: No
  Sender: FDA-Public Use
  Company Number: US-GLAXOSMITHKLINE-A0500656A

PATIENT
  Age: 53 Year
  Sex: Female

DRUGS (5)
  1. ADVAIR HFA [Suspect]
     Indication: ILL-DEFINED DISORDER
     Dosage: 250MCG TWICE PER DAY
     Route: 055
     Dates: start: 20040223, end: 20040228
  2. CLARITIN [Concomitant]
     Route: 065
  3. HORMONES [Concomitant]
     Route: 065
  4. MULTI-VITAMINS [Concomitant]
  5. CALCIUM SUPPLEMENT [Concomitant]

REACTIONS (3)
  - DRUG INEFFECTIVE [None]
  - HEADACHE [None]
  - VOMITING [None]
